FAERS Safety Report 5287544-8 (Version None)
Quarter: 2007Q1

REPORT INFORMATION
  Report Type: 
  Country: None (occurrence: None)
  Receive Date: 20070108
  Receipt Date: 20060306
  Transmission Date: 20070707
  Serious: Yes (Other)
  Sender: FDA-Public Use
  Company Number: 006814

PATIENT
  Sex: Female

DRUGS (6)
  1. ESTROPIPATE [Suspect]
     Dosage: ORAL
     Route: 048
     Dates: start: 19880101, end: 19990101
  2. PREMARIN [Suspect]
     Dosage: ORAL
     Route: 048
     Dates: start: 19880101, end: 19990101
  3. PROVERA [Suspect]
     Dosage: ORAL
     Route: 048
     Dates: start: 19880101, end: 19990101
  4. MEDROXYPROGESTERONE [Suspect]
     Dosage: ORAL
     Route: 048
     Dates: start: 19880101, end: 19990101
  5. ORTHO-EST [Suspect]
     Dosage: ORAL
     Route: 048
     Dates: start: 19880101, end: 19990101
  6. CYCRIN [Suspect]
     Dosage: ORAL
     Route: 048
     Dates: start: 19880101, end: 19990101

REACTIONS (1)
  - BREAST CANCER [None]
